FAERS Safety Report 23911519 (Version 1)
Quarter: 2024Q2

REPORT INFORMATION
  Report Type: Spontaneous
  Country: HR (occurrence: HR)
  Receive Date: 20240528
  Receipt Date: 20240528
  Transmission Date: 20240715
  Serious: Yes (Other)
  Sender: FDA-Public Use
  Company Number: None

PATIENT
  Age: 68 Year
  Sex: Male
  Weight: 88 kg

DRUGS (2)
  1. COSENTYX [Suspect]
     Active Substance: SECUKINUMAB
     Indication: Ankylosing spondylitis
     Dosage: JA?INA LIJEKA80 /160 MG DOZIRANJE 160 MG/MJESEC
     Route: 058
     Dates: start: 20230119, end: 202404
  2. COSENTYX [Suspect]
     Active Substance: SECUKINUMAB
     Indication: Psoriatic arthropathy

REACTIONS (4)
  - Psoriatic arthropathy [Recovering/Resolving]
  - Dactylitis [Recovering/Resolving]
  - Drug ineffective [Recovering/Resolving]
  - Enthesopathy [Recovering/Resolving]

NARRATIVE: CASE EVENT DATE: 20231101
